FAERS Safety Report 19868099 (Version 1)
Quarter: 2021Q3

REPORT INFORMATION
  Report Type: Spontaneous
  Country: JP (occurrence: JP)
  Receive Date: 20210922
  Receipt Date: 20210922
  Transmission Date: 20211014
  Serious: Yes (Hospitalization, Other)
  Sender: FDA-Public Use
  Company Number: JP-ACCORD-239090

PATIENT
  Age: 47 Year
  Sex: Female

DRUGS (3)
  1. TACROLIMUS. [Suspect]
     Active Substance: TACROLIMUS
     Indication: LIVER TRANSPLANT
     Dosage: REDUCED TO 2.2 MG/DAY AND  SWITCHED
  2. RITUXIMAB. [Concomitant]
     Active Substance: RITUXIMAB
     Indication: TRANSPLANT REJECTION
  3. MYCOPHENOLIC ACID. [Suspect]
     Active Substance: MYCOPHENOLIC ACID
     Indication: TRANSPLANT REJECTION
     Dosage: TEMPORARILY SUSPENDED

REACTIONS (6)
  - Pneumocystis jirovecii pneumonia [Unknown]
  - Pneumothorax [Unknown]
  - Hepatic enzyme increased [Unknown]
  - Renal impairment [Recovered/Resolved]
  - Condition aggravated [Unknown]
  - Cytomegalovirus infection [Unknown]
